FAERS Safety Report 10801958 (Version 1)
Quarter: 2015Q1

REPORT INFORMATION
  Report Type: Report from Study
  Country: CA (occurrence: CA)
  Receive Date: 20150217
  Receipt Date: 20150217
  Transmission Date: 20150721
  Serious: Yes (Hospitalization, Other)
  Sender: FDA-Public Use
  Company Number: CA-AMGEN-CANSP2014042344

PATIENT
  Age: 65 Year
  Sex: Female
  Weight: 78.5 kg

DRUGS (17)
  1. VITAMIN B [Concomitant]
     Active Substance: VITAMIN B
     Dosage: UNK
  2. BUPROPION [Concomitant]
     Active Substance: BUPROPION
     Dosage: UNK
  3. LASIX [Concomitant]
     Active Substance: FUROSEMIDE
     Dosage: 20 MG, UNK
     Route: 048
  4. ACCUPRIL [Concomitant]
     Active Substance: QUINAPRIL HYDROCHLORIDE
     Dosage: 10 MG, QD
  5. CELEXA [Concomitant]
     Active Substance: CITALOPRAM HYDROBROMIDE
     Dosage: 20 MG, QD
  6. PROLIA [Suspect]
     Active Substance: DENOSUMAB
     Indication: OSTEOPOROSIS POSTMENOPAUSAL
     Dosage: 60 MG, Q6MO
     Route: 058
     Dates: start: 20130528
  7. PROLIA [Suspect]
     Active Substance: DENOSUMAB
     Dosage: UNK
     Route: 058
     Dates: start: 20131122
  8. CALCIUM [Concomitant]
     Active Substance: CALCIUM
     Dosage: 500 UNK, BID
  9. ROSUVASTATIN [Concomitant]
     Active Substance: ROSUVASTATIN
     Dosage: UNK
  10. WELLBUTRIN [Concomitant]
     Active Substance: BUPROPION HYDROCHLORIDE
     Dosage: 300 UNK, QD
  11. VITAMIN D                          /00107901/ [Concomitant]
     Active Substance: ERGOCALCIFEROL
     Dosage: 10000 (UI) QWK
  12. NOVORAPID [Concomitant]
     Active Substance: INSULIN ASPART
     Dosage: 4-4-10-0
  13. INSULIN [Concomitant]
     Active Substance: INSULIN NOS
     Dosage: UNK
  14. FUROSEMIDE. [Concomitant]
     Active Substance: FUROSEMIDE
     Dosage: UNK
  15. CRESTOR [Concomitant]
     Active Substance: ROSUVASTATIN CALCIUM
     Dosage: 10 MG, QD
  16. LANTUS [Concomitant]
     Active Substance: INSULIN GLARGINE
     Dosage: 20 UNIT, (AT BED TIME)
  17. QUINAPRIL [Concomitant]
     Active Substance: QUINAPRIL\QUINAPRIL HYDROCHLORIDE
     Dosage: UNK

REACTIONS (7)
  - Haemorrhage [Unknown]
  - Colitis [Unknown]
  - Anaemia [Unknown]
  - Femoral neck fracture [Not Recovered/Not Resolved]
  - Hip fracture [Unknown]
  - Fall [Not Recovered/Not Resolved]
  - Pain [Not Recovered/Not Resolved]

NARRATIVE: CASE EVENT DATE: 201405
